FAERS Safety Report 17057623 (Version 3)
Quarter: 2019Q4

REPORT INFORMATION
  Report Type: Spontaneous
  Country: US (occurrence: US)
  Receive Date: 20191121
  Receipt Date: 20191211
  Transmission Date: 20200122
  Serious: No
  Sender: FDA-Public Use
  Company Number: US-JNJFOC-20191125195

PATIENT
  Age: 32 Year
  Sex: Female
  Weight: 81.72 kg

DRUGS (1)
  1. WOMENS ROGAINE UNSCENTED [Suspect]
     Active Substance: MINOXIDIL
     Indication: ALOPECIA
     Dosage: 1/2 CAPFUL 1/2 CAPFUL TWICE A DAY
     Route: 061
     Dates: start: 20191106, end: 20191108

REACTIONS (6)
  - Inappropriate schedule of product administration [Unknown]
  - Application site dryness [Recovered/Resolved]
  - Skin haemorrhage [Recovered/Resolved]
  - Application site pruritus [Recovered/Resolved]
  - Application site erosion [Recovered/Resolved]
  - Overdose [Unknown]

NARRATIVE: CASE EVENT DATE: 20191106
